FAERS Safety Report 8842860 (Version 2)
Quarter: 2012Q4

REPORT INFORMATION
  Report Type: 
  Country: US (occurrence: US)
  Receive Date: 20121016
  Receipt Date: 20121125
  Transmission Date: 20130627
  Serious: Yes (Other)
  Sender: FDA-Public Use
  Company Number: US-BAYER-2012-108227

PATIENT
  Age: 29 Year
  Sex: Female
  Weight: 62.59 kg

DRUGS (4)
  1. MIRENA [Suspect]
     Indication: BIRTH CONTROL
     Dosage: 20 mcg/24hr, CONT
     Route: 015
     Dates: start: 20120816, end: 20121107
  2. MIRENA [Suspect]
     Indication: MENORRHAGIA
  3. IBUPROFEN [Concomitant]
     Indication: LOWER ABDOMINAL PAIN
     Dosage: 400 mg, PRN
  4. PNV [Concomitant]
     Indication: SUPPLEMENTATION THERAPY
     Dosage: 1 UNK, UNK

REACTIONS (2)
  - Device expulsion [None]
  - Genital haemorrhage [Recovered/Resolved]
